FAERS Safety Report 21679387 (Version 1)
Quarter: 2022Q4

REPORT INFORMATION
  Report Type: Report from Study
  Country: US (occurrence: US)
  Receive Date: 20221205
  Receipt Date: 20221205
  Transmission Date: 20230113
  Serious: No
  Sender: FDA-Public Use
  Company Number: US-002147023-NVSC2022US279346

PATIENT
  Sex: Female

DRUGS (2)
  1. TABRECTA [Suspect]
     Active Substance: CAPMATINIB
     Indication: Product used for unknown indication
     Dosage: 2 DOSAGE FORM, QD
     Route: 048
  2. TABRECTA [Suspect]
     Active Substance: CAPMATINIB
     Dosage: 4 DOSAGE FORM, QD
     Route: 048

REACTIONS (3)
  - Fatigue [Unknown]
  - Nausea [Unknown]
  - Cough [Unknown]
